FAERS Safety Report 6932593-4 (Version None)
Quarter: 2010Q3

REPORT INFORMATION
  Report Type: 
  Country: None (occurrence: None)
  Receive Date: 20100819
  Receipt Date: 20100813
  Transmission Date: 20110219
  Serious: Yes (Death, Life-Threatening, Hospitalization, Disabling)
  Sender: FDA-Public Use
  Company Number: US-BRISTOL-MYERS SQUIBB COMPANY-15239718

PATIENT
  Age: 60 Year
  Sex: Male
  Weight: 63 kg

DRUGS (37)
  1. ATAZANAVIR [Suspect]
     Indication: HIV INFECTION
     Route: 065
     Dates: start: 20060812, end: 20070615
  2. DIDANOSINE [Suspect]
     Indication: HIV INFECTION
     Dosage: 125MG: 16JUN07-26JUN07 125MG: 05JUL07-14JUL07
     Route: 065
     Dates: start: 20070616, end: 20070714
  3. RALTEGRAVIR [Suspect]
     Indication: HIV INFECTION
     Dosage: FORM: TAB
     Route: 048
     Dates: start: 20070615, end: 20070626
  4. RITONAVIR [Suspect]
     Indication: HIV INFECTION
     Dosage: 12AUG06-26JUN07 05JUL07-14JUL07
     Route: 065
     Dates: start: 20060812, end: 20070714
  5. DARUNAVIR [Suspect]
     Indication: HIV INFECTION
     Dosage: 15JUN07-26JUN07 05JUL07-14JUL07
     Route: 065
     Dates: start: 20070615, end: 20070714
  6. ZIDOVUDINE [Suspect]
     Indication: HIV INFECTION
     Route: 065
     Dates: start: 20060812, end: 20070615
  7. EMTRICITABINE [Suspect]
     Indication: HIV INFECTION
     Route: 065
     Dates: start: 20060812, end: 20070615
  8. LAMIVUDINE [Suspect]
     Indication: HIV INFECTION
     Dates: start: 20070705
  9. CLARITHROMYCIN [Suspect]
     Indication: MYCOBACTERIUM AVIUM COMPLEX INFECTION
     Dosage: FORM: TAB
     Route: 048
     Dates: start: 20070607, end: 20070714
  10. FLUCONAZOLE [Suspect]
     Indication: ORAL CANDIDIASIS
     Dosage: FORM: TAB
     Route: 048
     Dates: start: 20070605, end: 20070714
  11. NEPHROCAPS [Concomitant]
     Dates: start: 20070620, end: 20070714
  12. VICODIN [Concomitant]
     Dates: start: 20070602, end: 20070714
  13. ACETYLCYSTEINE [Concomitant]
     Dates: start: 20070612, end: 20070613
  14. ALPROSTADIL [Concomitant]
     Dates: start: 20070605, end: 20070714
  15. PAPAVERINE HCL [Concomitant]
     Dates: start: 20070605, end: 20070714
  16. CITALOPRAM HYDROBROMIDE [Concomitant]
     Dates: start: 20070602, end: 20070714
  17. DAPSONE [Concomitant]
     Dates: start: 20070605, end: 20070714
  18. DRONABINOL [Concomitant]
     Dates: start: 20070602, end: 20070714
  19. ETHAMBUTOL HYDROCHLORIDE [Concomitant]
     Dates: start: 20070607, end: 20070714
  20. LEUCOVORIN CALCIUM [Concomitant]
     Dates: start: 20070616, end: 20070714
  21. LEVOGLUTAMIDE [Concomitant]
     Dates: start: 20070618, end: 20070714
  22. LORAZEPAM [Concomitant]
     Dates: start: 20070613, end: 20070714
  23. METOPROLOL [Concomitant]
     Dates: start: 20070602, end: 20070714
  24. MORPHINE [Concomitant]
     Dates: start: 20070606, end: 20070714
  25. OCTREOTIDE ACETATE [Concomitant]
     Dates: start: 20070614, end: 20070714
  26. OMEPRAZOLE [Concomitant]
     Dates: start: 20070619, end: 20070714
  27. OXANDROLONE [Concomitant]
     Dates: start: 20070615, end: 20070714
  28. OXYBUTYNIN [Concomitant]
     Dates: start: 20070607, end: 20070714
  29. PYRIDOXINE HCL [Concomitant]
     Dates: start: 20070602, end: 20070714
  30. PYRIMETHAMINE [Concomitant]
     Dates: start: 20070605, end: 20070714
  31. RANITIDINE [Concomitant]
     Dates: start: 20070607, end: 20070614
  32. RIFABUTIN [Concomitant]
     Dates: start: 20070607, end: 20070714
  33. SARGRAMOSTIM [Concomitant]
     Dates: start: 20070608, end: 20070714
  34. TAMSULOSIN HCL [Concomitant]
     Dates: start: 20070603, end: 20070714
  35. TESTOSTERONE [Concomitant]
     Dates: start: 20070616, end: 20070714
  36. ZINC [Concomitant]
     Dates: start: 20070617, end: 20070714
  37. EPOETIN ALFA [Concomitant]
     Dates: start: 20070615, end: 20070714

REACTIONS (9)
  - ANAEMIA [None]
  - CARDIO-RESPIRATORY ARREST [None]
  - CARDIOGENIC SHOCK [None]
  - CONVULSION [None]
  - GRAND MAL CONVULSION [None]
  - IMMUNE RECONSTITUTION SYNDROME [None]
  - MYOCARDIAL INFARCTION [None]
  - UNRESPONSIVE TO STIMULI [None]
  - VENTRICULAR FIBRILLATION [None]
